FAERS Safety Report 9709666 (Version 2)
Quarter: 2014Q1

REPORT INFORMATION
  Report Type: Report from Study
  Country: BR (occurrence: BR)
  Receive Date: 20131126
  Receipt Date: 20140212
  Transmission Date: 20141002
  Serious: Yes (Hospitalization, Other)
  Sender: FDA-Public Use
  Company Number: PHHY2013BR134354

PATIENT
  Sex: Female
  Weight: 61 kg

DRUGS (4)
  1. FORASEQ [Suspect]
     Indication: CHRONIC OBSTRUCTIVE PULMONARY DISEASE
     Dosage: 2 DF (12/400 MCG) DAILY
     Route: 055
  2. SPIRIVA [Suspect]
     Indication: CHRONIC OBSTRUCTIVE PULMONARY DISEASE
     Dosage: 2.5 UG, DAILY (1 CAPSULE DAILY)
     Route: 055
  3. PANTOPRAZOLE [Concomitant]
     Indication: GASTRITIS
     Dosage: 40 MG, IN THE MORNING
     Route: 048
  4. PANTOPRAZOLE [Concomitant]
     Indication: REFLUX GASTRITIS

REACTIONS (12)
  - Pneumonia [Recovered/Resolved]
  - Diabetes mellitus [Not Recovered/Not Resolved]
  - Blood glucose increased [Recovering/Resolving]
  - Cardiac failure [Not Recovered/Not Resolved]
  - Osteoporosis [Recovered/Resolved]
  - Osteopenia [Recovered/Resolved]
  - Hypothyroidism [Not Recovered/Not Resolved]
  - Blood triglycerides increased [Recovering/Resolving]
  - Blood cholesterol increased [Recovering/Resolving]
  - Hypertension [Recovered/Resolved]
  - Depression [Not Recovered/Not Resolved]
  - Insomnia [Not Recovered/Not Resolved]
